FAERS Safety Report 9426346 (Version 1)
Quarter: 2013Q3

REPORT INFORMATION
  Report Type: Spontaneous
  Country: US (occurrence: None)
  Receive Date: 20130729
  Receipt Date: 20130729
  Transmission Date: 20140515
  Serious: Yes (Death, Life-Threatening, Hospitalization)
  Sender: FDA-Public Use
  Company Number: None

PATIENT
  Age: 69 Year
  Sex: Male
  Weight: 68.04 kg

DRUGS (2)
  1. TARCEVA [Suspect]
     Indication: METASTASES TO LIVER
     Dosage: 1 TABLETS DAILY  PO
     Route: 048
     Dates: start: 20130317, end: 20130505
  2. TARCEVA [Suspect]
     Indication: NON-SMALL CELL LUNG CANCER
     Dosage: 1 TABLETS DAILY  PO
     Route: 048
     Dates: start: 20130317, end: 20130505

REACTIONS (10)
  - Asthenia [None]
  - Decreased appetite [None]
  - Constipation [None]
  - Dehydration [None]
  - Faecal incontinence [None]
  - Dermatitis acneiform [None]
  - Staphylococcal infection [None]
  - Oropharyngeal blistering [None]
  - Skin exfoliation [None]
  - Hypophagia [None]
